FAERS Safety Report 9070344 (Version 2)
Quarter: 2013Q2

REPORT INFORMATION
  Report Type: Spontaneous
  Country: US (occurrence: US)
  Receive Date: 20130215
  Receipt Date: 20130402
  Transmission Date: 20140414
  Serious: Yes (Hospitalization)
  Sender: FDA-Public Use
  Company Number: US-GENZYME-CART-1000090

PATIENT
  Sex: Male

DRUGS (1)
  1. CARTICEL [Suspect]
     Indication: CHONDROPATHY
     Dosage: UNK (IN RIGHT KNEE)
     Route: 014
     Dates: start: 20121112, end: 20121112

REACTIONS (3)
  - Arthritis bacterial [Unknown]
  - Post procedural infection [None]
  - Arthritis bacterial [None]
